FAERS Safety Report 22161036 (Version 1)
Quarter: 2023Q1

REPORT INFORMATION
  Report Type: Spontaneous
  Country: BE (occurrence: BE)
  Receive Date: 20230331
  Receipt Date: 20230331
  Transmission Date: 20230418
  Serious: Yes (Disabling)
  Sender: FDA-Public Use
  Company Number: None

PATIENT
  Age: 60 Year
  Sex: Male
  Weight: 79 kg

DRUGS (1)
  1. ACETAMINOPHEN [Suspect]
     Active Substance: ACETAMINOPHEN
     Indication: Product used for unknown indication
     Dosage: UNK
     Route: 065

REACTIONS (3)
  - Dyspepsia [Recovered/Resolved]
  - Fatigue [Recovered/Resolved]
  - Liver disorder [Recovered/Resolved]
